FAERS Safety Report 4704974-0 (Version None)
Quarter: 2005Q2

REPORT INFORMATION
  Report Type: 
  Country: None (occurrence: None)
  Receive Date: 20050624
  Receipt Date: 20050624
  Transmission Date: 20051028
  Serious: Yes (Disabling)
  Sender: FDA-Public Use
  Company Number: None

PATIENT
  Age: 51 Year
  Sex: Female
  Weight: 62.5964 kg

DRUGS (4)
  1. OVRAL [Suspect]
     Indication: CONTRACEPTION
     Dosage: 1 TAB DAILY AS DIRECTED
     Dates: start: 19710101, end: 20040612
  2. OVRAL [Suspect]
     Indication: MENORRHAGIA
     Dosage: 1 TAB DAILY AS DIRECTED
     Dates: start: 19710101, end: 20040612
  3. INFLUENZA VACCINE (INJECTION) [Suspect]
     Indication: IMMUNISATION
     Dosage: IM INJECTION X 1 DOSE
     Route: 030
     Dates: start: 20041015
  4. MULTI-VITAMINS [Concomitant]

REACTIONS (10)
  - AMENORRHOEA [None]
  - ARTHRALGIA [None]
  - BACK PAIN [None]
  - BURNING SENSATION [None]
  - DRUG WITHDRAWAL SYNDROME [None]
  - HORMONE LEVEL ABNORMAL [None]
  - MENOPAUSE [None]
  - NEUROPATHY PERIPHERAL [None]
  - PAIN IN EXTREMITY [None]
  - PARAESTHESIA [None]
